FAERS Safety Report 5490659-2 (Version None)
Quarter: 2007Q4

REPORT INFORMATION
  Report Type: 
  Country: None (occurrence: None)
  Receive Date: 20071019
  Receipt Date: 20071011
  Transmission Date: 20080405
  Serious: Yes (Other)
  Sender: FDA-Public Use
  Company Number: US-ASTRAZENECA-2007UW23686

PATIENT
  Age: 56 Year
  Sex: Male
  Weight: 121.6 kg

DRUGS (2)
  1. CRESTOR [Suspect]
     Indication: BLOOD CHOLESTEROL INCREASED
     Route: 048
     Dates: start: 20050101
  2. TOPROL-XL [Concomitant]

REACTIONS (5)
  - ANGIOGRAM ABNORMAL [None]
  - OCULAR HYPERAEMIA [None]
  - RASH MACULAR [None]
  - SKIN DISORDER [None]
  - SWELLING FACE [None]
